FAERS Safety Report 25097449 (Version 1)
Quarter: 2025Q1

REPORT INFORMATION
  Report Type: Spontaneous
  Country: CA (occurrence: CA)
  Receive Date: 20250320
  Receipt Date: 20250320
  Transmission Date: 20250408
  Serious: Yes (Other)
  Sender: CHIESI
  Company Number: CA-CHIESI-AEGR007239

PATIENT
  Age: 36 Year
  Sex: Male

DRUGS (3)
  1. LOMITAPIDE [Suspect]
     Active Substance: LOMITAPIDE
     Indication: Hypercholesterolaemia
  2. EVOLOCUMAB [Suspect]
     Active Substance: EVOLOCUMAB
     Indication: Hypercholesterolaemia
  3. EZETIMIBE [Suspect]
     Active Substance: EZETIMIBE
     Indication: Hypercholesterolaemia

REACTIONS (1)
  - Drug ineffective [Unknown]
